FAERS Safety Report 9258929 (Version 2)
Quarter: 2013Q2

REPORT INFORMATION
  Report Type: Spontaneous
  Country: FR (occurrence: FR)
  Receive Date: 20130426
  Receipt Date: 20130430
  Transmission Date: 20140414
  Serious: Yes (Hospitalization)
  Sender: FDA-Public Use
  Company Number: FR-GLAXOSMITHKLINE-B0884179A

PATIENT
  Age: 16 Year
  Sex: Female

DRUGS (3)
  1. LAMICTAL [Suspect]
     Indication: EPILEPSY
     Route: 048
  2. LIORESAL [Suspect]
     Indication: PRODUCT USED FOR UNKNOWN INDICATION
     Dosage: 10MG TWICE PER DAY
     Route: 048
     Dates: start: 2012
  3. DESMOPRESSIN [Suspect]
     Indication: HYPERNATRAEMIA
     Dosage: 45MCG PER DAY
     Route: 048
     Dates: end: 201301

REACTIONS (5)
  - Pancreatitis acute [Recovered/Resolved]
  - Depressed level of consciousness [Unknown]
  - Hypothermia [Unknown]
  - Vomiting [Recovered/Resolved]
  - Bradycardia [Unknown]
